FAERS Safety Report 10217507 (Version 2)
Quarter: 2014Q2

REPORT INFORMATION
  Report Type: Spontaneous
  Country: CA (occurrence: CA)
  Receive Date: 20140604
  Receipt Date: 20140604
  Transmission Date: 20141212
  Serious: Yes (Hospitalization)
  Sender: FDA-Public Use
  Company Number: CA-GILEAD-2014-0097650

PATIENT
  Age: 76 Year
  Sex: Female

DRUGS (16)
  1. AMBRISENTAN [Suspect]
     Indication: PULMONARY ARTERIAL HYPERTENSION
     Dosage: 10MG PER DAY
     Route: 065
     Dates: start: 20140310
  2. ELTROXIN [Concomitant]
  3. ELTROXIN [Concomitant]
  4. ELTROXIN [Concomitant]
  5. ATORVASTATIN [Concomitant]
  6. ATORVASTATIN [Concomitant]
     Dosage: 20 MG, UNK
  7. ATORVASTATIN [Concomitant]
     Dosage: 20 MG, UNK
  8. DENOSUMAB [Concomitant]
  9. VITAMIN D NOS [Concomitant]
  10. FUROSEMIDE [Concomitant]
  11. FUROSEMIDE [Concomitant]
  12. FUROSEMIDE [Concomitant]
  13. CALCIUM [Concomitant]
  14. ASA [Concomitant]
  15. RAMIPRIL [Concomitant]
  16. WARFARIN [Concomitant]

REACTIONS (4)
  - Lung disorder [Recovered/Resolved]
  - Feeling cold [Not Recovered/Not Resolved]
  - Oropharyngeal pain [Not Recovered/Not Resolved]
  - Dyspnoea [Not Recovered/Not Resolved]
